FAERS Safety Report 9316288 (Version 1)
Quarter: 2013Q2

REPORT INFORMATION
  Report Type: Spontaneous
  Country: IT (occurrence: None)
  Receive Date: 20130522
  Receipt Date: 20130522
  Transmission Date: 20140414
  Serious: Yes (Other)
  Sender: FDA-Public Use
  Company Number: CIP-2013-00127

PATIENT
  Sex: 0

DRUGS (2)
  1. EPIRUBICIN [Suspect]
     Indication: PREGNANCY
     Dosage: UNKNOWN IN UTERO EXPOSURE
  2. EPIRUBICIN [Suspect]
     Indication: BREAST CANCER
     Dosage: UNKNOWN IN UTERO EXPOSURE

REACTIONS (3)
  - Neonatal infection [None]
  - Maternal drugs affecting foetus [None]
  - Ventricular hypokinesia [None]
